FAERS Safety Report 13288750 (Version 4)
Quarter: 2017Q2

REPORT INFORMATION
  Report Type: Spontaneous
  Country: US (occurrence: US)
  Receive Date: 20170302
  Receipt Date: 20170621
  Transmission Date: 20170830
  Serious: No
  Sender: FDA-Public Use
  Company Number: US-PFIZER INC-2017087880

PATIENT
  Age: 44 Year
  Sex: Male

DRUGS (1)
  1. SUTENT [Suspect]
     Active Substance: SUNITINIB MALATE
     Dosage: 1 DF, DAILY (DAILY FOR 4 WEEKS)
     Route: 048
     Dates: start: 201702

REACTIONS (5)
  - Nausea [Unknown]
  - Chromaturia [Unknown]
  - Yellow skin [Unknown]
  - Skin hyperpigmentation [Unknown]
  - Diarrhoea [Unknown]
